FAERS Safety Report 13655860 (Version 3)
Quarter: 2017Q3

REPORT INFORMATION
  Report Type: Spontaneous
  Country: US (occurrence: US)
  Receive Date: 20170615
  Receipt Date: 20170912
  Transmission Date: 20171127
  Serious: No
  Sender: FDA-Public Use
  Company Number: US-GLAXOSMITHKLINE-US2017089545

PATIENT
  Sex: Female

DRUGS (3)
  1. LAMISIL AT CONTINUOUS SPRAY [Suspect]
     Active Substance: TERBINAFINE HYDROCHLORIDE
     Indication: PRURITUS
     Dosage: UNK
  2. LAMISIL AT CONTINUOUS SPRAY [Suspect]
     Active Substance: TERBINAFINE HYDROCHLORIDE
     Dosage: UNK
  3. LAMISIL AT CONTINUOUS SPRAY [Suspect]
     Active Substance: TERBINAFINE HYDROCHLORIDE
     Dosage: UNK

REACTIONS (2)
  - Product quality issue [Unknown]
  - Circumstance or information capable of leading to medication error [Unknown]
